FAERS Safety Report 12237745 (Version 1)
Quarter: 2016Q2

REPORT INFORMATION
  Report Type: Spontaneous
  Country: US (occurrence: None)
  Receive Date: 20160404
  Receipt Date: 20160404
  Transmission Date: 20160815
  Serious: Yes (Hospitalization, Other)
  Sender: FDA-Public Use
  Company Number: None

PATIENT
  Age: 18 Year
  Sex: Female
  Weight: 61.24 kg

DRUGS (4)
  1. BEYAZ [Suspect]
     Active Substance: DROSPIRENONE\ETHINYL ESTRADIOL\LEVOMEFOLATE CALCIUM
     Indication: CONTRACEPTION
     Dosage: 1 TABLET(S) ONCE A DAY TAKEN BY MOUTH
     Route: 048
     Dates: start: 20141101, end: 20150706
  2. SPIRONOLACTONE. [Concomitant]
     Active Substance: SPIRONOLACTONE
  3. ERRIN [Concomitant]
     Active Substance: NORETHINDRONE
  4. BEYAZ [Suspect]
     Active Substance: DROSPIRENONE\ETHINYL ESTRADIOL\LEVOMEFOLATE CALCIUM
     Indication: ACNE
     Dosage: 1 TABLET(S) ONCE A DAY TAKEN BY MOUTH
     Route: 048
     Dates: start: 20141101, end: 20150706

REACTIONS (12)
  - Paraesthesia [None]
  - Headache [None]
  - Dysphagia [None]
  - Seizure [None]
  - Hypoaesthesia [None]
  - Irritability [None]
  - Migraine [None]
  - Transient ischaemic attack [None]
  - Aphasia [None]
  - Dizziness [None]
  - Confusional state [None]
  - Dehydration [None]

NARRATIVE: CASE EVENT DATE: 20150706
